FAERS Safety Report 12385398 (Version 2)
Quarter: 2016Q2

REPORT INFORMATION
  Report Type: Report from Study
  Country: US (occurrence: US)
  Receive Date: 20160519
  Receipt Date: 20160524
  Transmission Date: 20160815
  Serious: Yes (Other)
  Sender: FDA-Public Use
  Company Number: US-ABBVIE-16K-163-1628852-00

PATIENT
  Age: 61 Year
  Sex: Female
  Weight: 94.89 kg

DRUGS (1)
  1. HUMIRA [Suspect]
     Active Substance: ADALIMUMAB
     Indication: PSORIASIS
     Route: 058
     Dates: start: 2015

REACTIONS (2)
  - Rotator cuff syndrome [Unknown]
  - Fall [Unknown]

NARRATIVE: CASE EVENT DATE: 20160502
